FAERS Safety Report 14236344 (Version 1)
Quarter: 2017Q4

REPORT INFORMATION
  Report Type: Report from Study
  Country: JP (occurrence: JP)
  Receive Date: 20171129
  Receipt Date: 20171129
  Transmission Date: 20180321
  Serious: Yes (Other)
  Sender: FDA-Public Use
  Company Number: JP-DSJP-DSJ-2017-151570

PATIENT

DRUGS (5)
  1. FEBURIC [Concomitant]
     Active Substance: FEBUXOSTAT
     Dosage: 10MG/DAY
     Route: 048
  2. AMLODIPINE                         /00972402/ [Concomitant]
     Active Substance: AMLODIPINE BESYLATE
     Dosage: 2.5MG/DAY
     Route: 048
  3. EDOXABAN [Suspect]
     Active Substance: EDOXABAN TOSYLATE
     Indication: ATRIAL FIBRILLATION
     Dosage: 30 MG, QD
     Route: 048
     Dates: start: 20170527
  4. TANATRIL [Concomitant]
     Active Substance: IMIDAPRIL
     Dosage: 5MG/DAY
     Route: 048
  5. WARFARIN                           /00014803/ [Concomitant]
     Active Substance: WARFARIN
     Dosage: 3MG/DAY
     Route: 048
     Dates: end: 20170521

REACTIONS (3)
  - White blood cell count increased [Recovered/Resolved]
  - Anaemia [Not Recovered/Not Resolved]
  - Malaise [Recovered/Resolved]

NARRATIVE: CASE EVENT DATE: 20170914
